FAERS Safety Report 4753647-7 (Version None)
Quarter: 2005Q3

REPORT INFORMATION
  Report Type: 
  Country: None (occurrence: None)
  Receive Date: 20050824
  Receipt Date: 20050804
  Transmission Date: 20060218
  Serious: Yes (Other)
  Sender: FDA-Public Use
  Company Number: 2005058301

PATIENT
  Sex: Female

DRUGS (2)
  1. BEXTRA [Suspect]
     Indication: URINARY TRACT INFECTION
     Dosage: 40 MG (40 MG, SINGLE INTERVAL: EVERYDAY), ORAL
     Route: 048
     Dates: start: 20040101, end: 20040101
  2. ANTIBIOTICS (ANTIBIOTICS) [Concomitant]

REACTIONS (2)
  - BACTERAEMIA [None]
  - BLOOD PRESSURE DECREASED [None]
